FAERS Safety Report 4773031-X (Version None)
Quarter: 2005Q3

REPORT INFORMATION
  Report Type: 
  Country: None (occurrence: None)
  Receive Date: 20050916
  Receipt Date: 20050916
  Transmission Date: 20060218
  Serious: Yes (Hospitalization, Other)
  Sender: FDA-Public Use
  Company Number: None

PATIENT
  Sex: Female
  Weight: 56.8 kg

DRUGS (7)
  1. CISPLATIN [Suspect]
     Indication: SQUAMOUS CELL CARCINOMA OF THE CERVIX
     Dosage: SEE IMAGE
     Dates: start: 20050817, end: 20050817
  2. GEMCITABINE [Suspect]
     Dosage: SEE IMAGE
     Dates: start: 20050817, end: 20050817
  3. FERROUS SULFATE [Concomitant]
  4. LASIX [Concomitant]
  5. LORTAB [Concomitant]
  6. METOPROLOL [Concomitant]
  7. POTASSIUM CHLORIDE [Concomitant]

REACTIONS (4)
  - DEHYDRATION [None]
  - NAUSEA [None]
  - VOMITING [None]
  - WEIGHT DECREASED [None]
